FAERS Safety Report 9280480 (Version 2)
Quarter: 2013Q2

REPORT INFORMATION
  Report Type: Spontaneous
  Country: US (occurrence: None)
  Receive Date: 20130503
  Receipt Date: 20130513
  Transmission Date: 20140414
  Serious: Yes (Hospitalization, Other)
  Sender: FDA-Public Use
  Company Number: 2013-0731

PATIENT
  Sex: 0

DRUGS (15)
  1. KYPROLIS [Suspect]
     Indication: PRODUCT USED FOR UNKNOWN INDICATION
     Dosage: 1
  2. DEPAKOTE (VALPROATE SEMISODIUM) (VALPROATE SEMISODIUM) [Concomitant]
  3. ACYCLOIR (ACICLOVIR) (ACICLOVIR) [Concomitant]
  4. ASPIRIN (ACETYLSALICYLIC ACID0 (ACETYLSALICYLIC ACID) [Concomitant]
  5. ATENOLOL (ATENOLOL) (ATENOLOL) [Concomitant]
  6. CALCIUM AND VITAMIN D (COLECALCIFEROL) (COLECALCIFEROL) [Concomitant]
  7. GLIPIZIDE XL (GLIPIZIDE) (GLIPIZIDE) [Concomitant]
  8. IRON (IRON) (IRON) [Concomitant]
  9. LISINOPRIL WITH HCTZ (HYDROCHLOROTHIAZIDE) (HYDROCHLOROTHIAZIDE) [Concomitant]
  10. METFORMIN (METFORMIN) (METFORMIN) [Concomitant]
  11. NORVASC (AMLODIPINE BESILATE0 (AMLODIPINE BESILATE) [Concomitant]
  12. PRILOSEC (OMEPRAZOLE) (OMEPRAZOLE) [Concomitant]
  13. QUETIAPINE (QUETIAPINE) (QUETIAPINE) [Concomitant]
  14. SIMVASTATIN (SIMVASTATIN) (SIMVASTATIN) [Concomitant]
  15. VITAMIN B12 (VITAMIN B12 NOS) (VITAMIN B12 NOS) [Concomitant]

REACTIONS (3)
  - Convulsion [None]
  - Headache [None]
  - Somnolence [None]
